FAERS Safety Report 12782726 (Version 6)
Quarter: 2017Q1

REPORT INFORMATION
  Report Type: Report from Study
  Country: US (occurrence: US)
  Receive Date: 20160927
  Receipt Date: 20170112
  Transmission Date: 20170428
  Serious: Yes (Hospitalization)
  Sender: FDA-Public Use
  Company Number: US-ACTELION-A-US2016-142759

PATIENT
  Age: 47 Year
  Sex: Female

DRUGS (7)
  1. UPTRAVI [Suspect]
     Active Substance: SELEXIPAG
     Dosage: 200 MCG, BID
     Route: 048
  2. XARELTO [Concomitant]
     Active Substance: RIVAROXABAN
  3. REMODULIN [Suspect]
     Active Substance: TREPROSTINIL
     Indication: PULMONARY HYPERTENSION
     Dosage: 0.012 MCG/KG
     Route: 042
     Dates: start: 20160919
  4. UPTRAVI [Suspect]
     Active Substance: SELEXIPAG
     Indication: PULMONARY HYPERTENSION
     Dosage: 1600 MCG, BID
     Route: 048
     Dates: start: 20160318
  5. UPTRAVI [Suspect]
     Active Substance: SELEXIPAG
     Dosage: 600 MCG, BID
     Route: 048
     Dates: start: 20160318
  6. OPSUMIT [Suspect]
     Active Substance: MACITENTAN
     Indication: PULMONARY HYPERTENSION
     Dosage: 10 MG, QD
     Route: 048
     Dates: start: 20140407
  7. ADEMPAS [Concomitant]
     Active Substance: RIOCIGUAT

REACTIONS (18)
  - Dyspnoea [Unknown]
  - Pain [Unknown]
  - Dermatitis contact [Unknown]
  - Diarrhoea [Unknown]
  - Pulmonary arterial hypertension [Unknown]
  - Fluid retention [Unknown]
  - Pulmonary embolism [Unknown]
  - Oxygen saturation decreased [Unknown]
  - Disease complication [Unknown]
  - Nausea [Unknown]
  - Pain in extremity [Unknown]
  - Haemodynamic instability [Unknown]
  - Anxiety [Unknown]
  - Condition aggravated [Unknown]
  - Device occlusion [Unknown]
  - Fatigue [Unknown]
  - Catheter site pruritus [Unknown]
  - Abdominal pain [Unknown]
